FAERS Safety Report 18659745 (Version 1)
Quarter: 2020Q4

REPORT INFORMATION
  Report Type: Spontaneous
  Country: JP (occurrence: JP)
  Receive Date: 20201224
  Receipt Date: 20201224
  Transmission Date: 20210114
  Serious: Yes (Other)
  Sender: FDA-Public Use
  Company Number: JP-PFIZER INC-2020504776

PATIENT
  Age: 68 Year
  Sex: Female

DRUGS (1)
  1. SUTENT [Suspect]
     Active Substance: SUNITINIB MALATE
     Indication: RENAL CELL CARCINOMA
     Dosage: 3 DF, CYCLIC(2 WEEKS ON AND 2 WEEKS TEMPORARY WITHDRAWAL, IN THE MORNING)
     Route: 048
     Dates: start: 20201201, end: 20201214

REACTIONS (4)
  - Femoral neck fracture [Unknown]
  - Inappropriate schedule of product administration [Unknown]
  - Deep vein thrombosis [Unknown]
  - Off label use [Unknown]

NARRATIVE: CASE EVENT DATE: 20201201
